FAERS Safety Report 9279187 (Version 2)
Quarter: 2013Q3

REPORT INFORMATION
  Report Type: Report from Study
  Country: US (occurrence: US)
  Receive Date: 20130508
  Receipt Date: 20130723
  Transmission Date: 20140515
  Serious: Yes (Hospitalization, Other)
  Sender: FDA-Public Use
  Company Number: US-ABBOTT-13P-163-1084278-00

PATIENT
  Age: 50 Year
  Sex: Female
  Weight: 112.59 kg

DRUGS (10)
  1. HUMIRA [Suspect]
     Indication: RHEUMATOID ARTHRITIS
     Dates: start: 20130112, end: 20130323
  2. PREDNISONE [Concomitant]
     Indication: PRODUCT USED FOR UNKNOWN INDICATION
  3. PREDNISONE [Concomitant]
     Dosage: INCREASED FROM 10MG
  4. FLEXERIL [Concomitant]
     Indication: PRODUCT USED FOR UNKNOWN INDICATION
     Dosage: QHS
  5. TYLENOL EXTRA STRENGTH [Concomitant]
     Indication: RHEUMATOID ARTHRITIS
     Dosage: QHS
  6. SYNTHROID [Concomitant]
     Indication: HYPOTHYROIDISM
  7. SIMVASTATIN [Concomitant]
     Indication: BLOOD CHOLESTEROL INCREASED
  8. ALLEGRA [Concomitant]
     Indication: HYPERSENSITIVITY
  9. VITAMIN D3 [Concomitant]
     Indication: VITAMIN D DEFICIENCY
  10. PROZAC [Concomitant]
     Indication: DEPRESSION
     Dosage: QHS

REACTIONS (28)
  - Hypotension [Recovered/Resolved]
  - Pericarditis [Recovering/Resolving]
  - Arthralgia [Recovering/Resolving]
  - Malaise [Recovering/Resolving]
  - Fatigue [Recovering/Resolving]
  - Sleep disorder [Recovering/Resolving]
  - Decreased activity [Recovering/Resolving]
  - Painful respiration [Recovering/Resolving]
  - Chest pain [Recovering/Resolving]
  - Neck pain [Recovering/Resolving]
  - Pain in jaw [Recovering/Resolving]
  - Back pain [Recovering/Resolving]
  - Myalgia [Recovering/Resolving]
  - Nausea [Recovering/Resolving]
  - Vomiting [Recovered/Resolved]
  - Diarrhoea [Recovered/Resolved]
  - Septic shock [Recovering/Resolving]
  - Cardiac tamponade [Recovered/Resolved]
  - Rheumatoid factor positive [Recovering/Resolving]
  - Organ failure [Recovering/Resolving]
  - Gastroenteritis viral [Recovered/Resolved]
  - Pleuritic pain [Recovered/Resolved]
  - Acute hepatic failure [Recovered/Resolved]
  - Renal failure acute [Recovered/Resolved]
  - Pericardial effusion [Recovered/Resolved]
  - Dyspnoea [Recovered/Resolved]
  - Left ventricular hypertrophy [Unknown]
  - Dehydration [Unknown]
